FAERS Safety Report 19084985 (Version 1)
Quarter: 2021Q2

REPORT INFORMATION
  Report Type: Report from Study
  Country: US (occurrence: US)
  Receive Date: 20210401
  Receipt Date: 20210401
  Transmission Date: 20210717
  Serious: No
  Sender: FDA-Public Use
  Company Number: US-RETROPHIN, INC.-2020RTN00094

PATIENT
  Sex: Female

DRUGS (2)
  1. CHOLIC ACID [Suspect]
     Active Substance: CHOLIC ACID
     Indication: LIPIDOSIS
     Dosage: 250 MG, 2X/DAY
     Dates: start: 20200410
  2. CHENODAL [Suspect]
     Active Substance: CHENODIOL
     Indication: LIPIDOSIS
     Dosage: 250 MG, 3X/DAY
     Dates: start: 20160211

REACTIONS (1)
  - Abscess [Unknown]

NARRATIVE: CASE EVENT DATE: 2020
